FAERS Safety Report 9995745 (Version 2)
Quarter: 2014Q2

REPORT INFORMATION
  Report Type: Spontaneous
  Country: ES (occurrence: ES)
  Receive Date: 20140311
  Receipt Date: 20140404
  Transmission Date: 20141212
  Serious: No
  Sender: FDA-Public Use
  Company Number: ES-ALLERGAN-1404289US

PATIENT
  Age: 64 Year
  Sex: Female
  Weight: 81 kg

DRUGS (7)
  1. DYSPORT [Suspect]
     Indication: MUSCULOSKELETAL PAIN
     Dosage: UNK, SINGLE
     Dates: start: 20131105, end: 20131105
  2. UNSPECIFIED INGREDIENT [Suspect]
     Indication: PRODUCT USED FOR UNKNOWN INDICATION
  3. DIAZEPAM [Concomitant]
     Indication: MUSCLE RELAXANT THERAPY
     Dosage: 5 MG, UNK
  4. FLUVASTATINA RATIOPHARM 80 MG COMPRIMIDOS DE LIBERACION PROLONGADA EFG [Concomitant]
     Indication: HYPERCHOLESTEROLAEMIA
     Dosage: 80 MG, QOD
  5. EUTIROX 112 MICROGRAMOS COMPRIMIDOS , 28 COMPRIMIDOS [Concomitant]
     Indication: THYROIDECTOMY
     Dosage: 112 PG, UNK
  6. NATECAL D FLAS COMPRIMIDOS BUCODISPERSABLES, 60 COMPRIMIDOS [Concomitant]
     Indication: OSTEOPENIA
     Dosage: 1500 MG, UNK
  7. XALACOM 50 MICROGRAMOS/ML + 5 MG/ML COLIRIO EN SOLUCION , 1 FRASCO DE [Concomitant]
     Indication: OCULAR HYPERTENSION
     Dosage: 2 GTT, UNK

REACTIONS (11)
  - Oropharyngeal pain [Recovering/Resolving]
  - Pharyngeal oedema [Recovering/Resolving]
  - Myalgia [Recovering/Resolving]
  - Sensation of foreign body [Not Recovered/Not Resolved]
  - Chest pain [Recovering/Resolving]
  - Abdominal pain upper [Recovering/Resolving]
  - Dysphonia [Not Recovered/Not Resolved]
  - Dysphonia [Recovering/Resolving]
  - Off label use [Unknown]
  - Malaise [Recovering/Resolving]
  - Pain in extremity [Recovering/Resolving]
